FAERS Safety Report 17525465 (Version 2)
Quarter: 2020Q1

REPORT INFORMATION
  Report Type: Spontaneous
  Country: CA (occurrence: CA)
  Receive Date: 20200311
  Receipt Date: 20200326
  Transmission Date: 20200409
  Serious: Yes (Life-Threatening, Other)
  Sender: FDA-Public Use
  Company Number: CA-ROCHE-2561197

PATIENT
  Age: 47 Year
  Sex: Female

DRUGS (1)
  1. XOLAIR [Suspect]
     Active Substance: OMALIZUMAB
     Indication: CHRONIC SPONTANEOUS URTICARIA
     Route: 058
     Dates: start: 20200128

REACTIONS (10)
  - Urticaria [Unknown]
  - Heart rate increased [Unknown]
  - White coat hypertension [Unknown]
  - Rash [Unknown]
  - Malaise [Unknown]
  - Flushing [Unknown]
  - Hypersensitivity [Unknown]
  - Pruritus [Unknown]
  - Nightmare [Unknown]
  - Nausea [Not Recovered/Not Resolved]

NARRATIVE: CASE EVENT DATE: 20200128
